FAERS Safety Report 8767338 (Version 2)
Quarter: 2013Q1

REPORT INFORMATION
  Report Type: Spontaneous
  Country: DE (occurrence: DE)
  Receive Date: 20120904
  Receipt Date: 20130313
  Transmission Date: 20140127
  Serious: Yes (Other)
  Sender: FDA-Public Use
  Company Number: DE-GLAXOSMITHKLINE-D0076897A

PATIENT
  Age: 52 Year
  Sex: Male

DRUGS (5)
  1. SEROXAT [Suspect]
     Dosage: 80MG SINGLE DOSE
     Dates: start: 20120830
  2. DORMICUM [Suspect]
     Dosage: 127.5MG SINGLE DOSE
     Route: 048
     Dates: start: 20120830
  3. TRAMADOL [Suspect]
     Dosage: 200MG SINGLE DOSE
     Route: 048
     Dates: start: 20120830
  4. IBUPROFEN [Suspect]
     Dosage: 400MG SINGLE DOSE
     Route: 048
     Dates: start: 20120830
  5. ALCOHOL [Suspect]
     Route: 048
     Dates: start: 20120830

REACTIONS (4)
  - Suicide attempt [Unknown]
  - Sopor [Unknown]
  - Sinus bradycardia [Unknown]
  - Intentional overdose [Unknown]
